FAERS Safety Report 5299544-2 (Version None)
Quarter: 2007Q2

REPORT INFORMATION
  Report Type: 
  Country: None (occurrence: None)
  Receive Date: 20070410
  Receipt Date: 20070330
  Transmission Date: 20071010
  Serious: Yes (Hospitalization)
  Sender: FDA-Public Use
  Company Number: A0644082A

PATIENT
  Age: 50 Year
  Sex: Female

DRUGS (5)
  1. ADVAIR DISKUS 100/50 [Suspect]
     Indication: DYSPNOEA
     Dosage: 1 PUFF(S)/TWICE PER DAY/INHALED
     Route: 055
     Dates: start: 20070302, end: 20070303
  2. ADRENALIN IN OIL INJ [Suspect]
  3. BENAZEPRIL HYDROCHLORIDE [Concomitant]
  4. PREDNISONE TAB [Concomitant]
  5. ANTIBIOTICS [Concomitant]

REACTIONS (6)
  - ABNORMAL SENSATION IN EYE [None]
  - DYSPNOEA [None]
  - HEADACHE [None]
  - HEART RATE INCREASED [None]
  - THROAT TIGHTNESS [None]
  - TREMOR [None]
